FAERS Safety Report 4384376-X (Version None)
Quarter: 2004Q2

REPORT INFORMATION
  Report Type: 
  Country: None (occurrence: None)
  Receive Date: 20040624
  Receipt Date: 20040617
  Transmission Date: 20050107
  Serious: Yes (Hospitalization)
  Sender: FDA-Public Use
  Company Number: FR-BRISTOL-MYERS SQUIBB COMPANY-12618849

PATIENT
  Age: 50 Year
  Sex: Female

DRUGS (1)
  1. COUMADIN [Suspect]
     Route: 048
     Dates: end: 20040104

REACTIONS (3)
  - ANAEMIA [None]
  - MUSCLE HAEMORRHAGE [None]
  - ROAD TRAFFIC ACCIDENT [None]
